FAERS Safety Report 9079471 (Version 1)
Quarter: 2013Q1

REPORT INFORMATION
  Report Type: Report from Study
  Country: US (occurrence: US)
  Receive Date: 20130130
  Receipt Date: 20130130
  Transmission Date: 20140127
  Serious: No
  Sender: FDA-Public Use
  Company Number: US-ABBOTT-12P-163-0975152-00

PATIENT
  Age: 48 None
  Sex: Male
  Weight: 127.57 kg

DRUGS (9)
  1. HUMIRA [Suspect]
     Indication: PSORIATIC ARTHROPATHY
     Dates: start: 2008, end: 201111
  2. HUMIRA [Suspect]
     Dates: start: 20120802, end: 20120802
  3. PREDNISONE [Concomitant]
     Indication: PSORIATIC ARTHROPATHY
     Dosage: AT BEDTIME
  4. RANITIDINE [Concomitant]
     Indication: HAEMORRHAGE PROPHYLAXIS
  5. IBUPROFEN [Concomitant]
     Indication: PAIN
  6. IBUPROFEN [Concomitant]
     Indication: MUSCULOSKELETAL STIFFNESS
  7. METHOCARBAMOL [Concomitant]
     Indication: MUSCLE SPASMS
  8. LORTAB [Concomitant]
     Indication: BREAKTHROUGH PAIN
  9. XALATAN [Concomitant]
     Indication: GLAUCOMA
     Route: 047

REACTIONS (23)
  - Gait disturbance [Recovered/Resolved]
  - Weight decreased [Not Recovered/Not Resolved]
  - Skin disorder [Not Recovered/Not Resolved]
  - Impaired healing [Not Recovered/Not Resolved]
  - Paraesthesia [Recovered/Resolved]
  - Gait disturbance [Recovered/Resolved]
  - Walking aid user [Recovered/Resolved]
  - Oedema peripheral [Not Recovered/Not Resolved]
  - Arthropathy [Not Recovered/Not Resolved]
  - Dyskinesia [Not Recovered/Not Resolved]
  - Skin discolouration [Recovering/Resolving]
  - Dactylitis [Not Recovered/Not Resolved]
  - Musculoskeletal disorder [Recovered/Resolved]
  - Local swelling [Unknown]
  - Muscular weakness [Unknown]
  - Oedema peripheral [Unknown]
  - Joint range of motion decreased [Unknown]
  - Pain in extremity [Unknown]
  - Hypoaesthesia [Unknown]
  - Hypoaesthesia [Unknown]
  - Musculoskeletal disorder [Unknown]
  - Muscle spasms [Unknown]
  - Diaphragmatic paralysis [Unknown]
